FAERS Safety Report 6331667-9 (Version None)
Quarter: 2009Q3

REPORT INFORMATION
  Report Type: 
  Country: None (occurrence: None)
  Receive Date: 20090827
  Receipt Date: 20090824
  Transmission Date: 20100115
  Serious: Yes (Hospitalization)
  Sender: FDA-Public Use
  Company Number: AU-ROXANE LABORATORIES, INC.-2009-RO-00865RO

PATIENT
  Age: 48 Year
  Sex: Male

DRUGS (5)
  1. TOPIRAMATE [Suspect]
     Indication: EPILEPSY
     Dosage: 200 MG
  2. VALPROATE SODIUM [Suspect]
     Indication: EPILEPSY
     Dosage: 1400 MG
  3. AMPHOTERICIN B [Suspect]
     Indication: ASPERGILLOMA
     Route: 042
  4. POSACONAZOLE [Suspect]
     Dosage: 800 MG
  5. VORICONAZOLE [Concomitant]
     Indication: ANTIFUNGAL TREATMENT

REACTIONS (2)
  - DRUG INTERACTION [None]
  - DRUG TOXICITY [None]
